FAERS Safety Report 5695755-2 (Version None)
Quarter: 2008Q2

REPORT INFORMATION
  Report Type: 
  Country: None (occurrence: None)
  Receive Date: 20080407
  Receipt Date: 20080326
  Transmission Date: 20081010
  Serious: Yes (Disabling, Other)
  Sender: FDA-Public Use
  Company Number: US-ELI_LILLY_AND_COMPANY-US200803005979

PATIENT
  Sex: Male

DRUGS (12)
  1. ZYPREXA [Suspect]
  2. CARBAMAZEPINE [Concomitant]
  3. NEURONTIN [Concomitant]
  4. SEROQUEL [Concomitant]
  5. LORAZEPAM [Concomitant]
  6. HALOPERIDOL [Concomitant]
  7. NEXIUM [Concomitant]
  8. POTASSIUM CHLORIDE [Concomitant]
  9. FLOMAX [Concomitant]
  10. LISINOPRIL [Concomitant]
  11. CARVEDILOL [Concomitant]
  12. DIPHENHYDRAMINE HCL [Concomitant]
     Indication: HYPERSENSITIVITY

REACTIONS (7)
  - CHOKING [None]
  - DIABETES MELLITUS [None]
  - GENERAL PHYSICAL HEALTH DETERIORATION [None]
  - MALAISE [None]
  - OESOPHAGEAL DISORDER [None]
  - PNEUMONIA ASPIRATION [None]
  - WEIGHT INCREASED [None]
